FAERS Safety Report 14980528 (Version 1)
Quarter: 2018Q2

REPORT INFORMATION
  Report Type: Spontaneous
  Country: CN (occurrence: CN)
  Receive Date: 20180606
  Receipt Date: 20180606
  Transmission Date: 20180711
  Serious: Yes (Hospitalization)
  Sender: FDA-Public Use
  Company Number: CN-MYLANLABS-2018M1037909

PATIENT
  Age: 54 Year
  Sex: Male

DRUGS (1)
  1. CISPLATIN. [Suspect]
     Active Substance: CISPLATIN
     Indication: NASOPHARYNGEAL CANCER
     Dosage: FIVE TIMES AND ONE DAY PRIOR TO THE PRESENTATION, HE RECEIVED CISPLATIN
     Route: 065

REACTIONS (2)
  - Gallbladder perforation [Unknown]
  - Cholecystitis acute [Unknown]
